FAERS Safety Report 7098797-8 (Version None)
Quarter: 2010Q4

REPORT INFORMATION
  Report Type: 
  Country: None (occurrence: None)
  Receive Date: 20101112
  Receipt Date: 20101103
  Transmission Date: 20110411
  Serious: Yes (Other)
  Sender: FDA-Public Use
  Company Number: BE-ROCHE-733864

PATIENT
  Sex: Female
  Weight: 70 kg

DRUGS (8)
  1. ROACTEMRA [Suspect]
     Indication: RHEUMATOID ARTHRITIS
     Route: 042
     Dates: start: 20100701, end: 20100901
  2. ARAVA [Suspect]
     Indication: RHEUMATOID ARTHRITIS
     Route: 048
     Dates: start: 20100701, end: 20100801
  3. PREDNISOLONE [Suspect]
     Indication: RHEUMATOID ARTHRITIS
     Dosage: 10-20 MG
     Route: 048
     Dates: start: 20090101
  4. OMEPRAZOLE [Concomitant]
     Indication: OESOPHAGITIS
     Route: 048
     Dates: start: 20100301
  5. EMCONCOR [Concomitant]
     Indication: TACHYCARDIA
     Route: 048
     Dates: start: 20100101
  6. DOMINAL [Concomitant]
     Indication: INSOMNIA
     Route: 048
     Dates: start: 20100101
  7. LYSANXIA [Concomitant]
     Indication: ANXIETY
     Route: 048
     Dates: start: 20070101
  8. ZALDIAR [Concomitant]
     Indication: PAIN
     Dosage: 325/37.5 MG 1-4 DAILY.
     Route: 048
     Dates: start: 20070101

REACTIONS (2)
  - GINGIVITIS [None]
  - LOOSE TOOTH [None]
